FAERS Safety Report 6011769-7 (Version None)
Quarter: 2008Q4

REPORT INFORMATION
  Report Type: 
  Country: None (occurrence: None)
  Receive Date: 20081218
  Receipt Date: 20080319
  Transmission Date: 20090506
  Serious: No
  Sender: FDA-Public Use
  Company Number: US-ABBOTT-08P-163-0443035-00

PATIENT
  Sex: Female
  Weight: 69.462 kg

DRUGS (8)
  1. MERIDIA [Suspect]
     Indication: OVERWEIGHT
     Route: 048
     Dates: start: 20080101, end: 20080107
  2. MERIDIA [Suspect]
     Indication: WEIGHT DECREASED
     Route: 048
     Dates: start: 20080108, end: 20080128
  3. MERIDIA [Suspect]
     Route: 048
     Dates: start: 20080129, end: 20080320
  4. OLMESARTAN MEDOXOMIL [Concomitant]
     Indication: BLOOD PRESSURE
     Route: 048
  5. FENOFIBRATE [Concomitant]
     Indication: BLOOD CHOLESTEROL INCREASED
     Route: 048
  6. ALPRAZOLAM [Concomitant]
     Indication: DRUG USE FOR UNKNOWN INDICATION
  7. BP MEDICATION [Concomitant]
     Indication: HYPERTENSION
  8. CHOLESTEROL MEDICATION [Concomitant]
     Indication: BLOOD CHOLESTEROL INCREASED

REACTIONS (4)
  - HEART RATE INCREASED [None]
  - INSOMNIA [None]
  - NERVOUSNESS [None]
  - NIGHT SWEATS [None]
